FAERS Safety Report 23718439 (Version 2)
Quarter: 2024Q2

REPORT INFORMATION
  Report Type: Spontaneous
  Country: US (occurrence: US)
  Receive Date: 20240408
  Receipt Date: 20240408
  Transmission Date: 20240716
  Serious: Yes (Death, Other)
  Sender: FDA-Public Use
  Company Number: US-ABBVIE-5709357

PATIENT
  Sex: Female

DRUGS (1)
  1. SYNTHROID [Suspect]
     Active Substance: LEVOTHYROXINE SODIUM
     Indication: Hypothyroidism
     Route: 048

REACTIONS (9)
  - Arrhythmia [Fatal]
  - Cerebrovascular accident [Unknown]
  - Fall [Unknown]
  - Joint dislocation [Unknown]
  - Pain [Unknown]
  - Spinal operation [Unknown]
  - Haematoma [Unknown]
  - Wheelchair user [Unknown]
  - Limb fracture [Unknown]

NARRATIVE: CASE EVENT DATE: 20231206
